FAERS Safety Report 10092164 (Version 1)
Quarter: 2014Q2

REPORT INFORMATION
  Report Type: Spontaneous
  Country: US (occurrence: US)
  Receive Date: 20140421
  Receipt Date: 20140421
  Transmission Date: 20141212
  Serious: No
  Sender: FDA-Public Use
  Company Number: US-SANOFI-AVENTIS-2013SA042352

PATIENT
  Sex: 0

DRUGS (2)
  1. ALLEGRA [Suspect]
     Indication: SEASONAL ALLERGY
  2. ALLEGRA [Suspect]
     Indication: SEASONAL ALLERGY

REACTIONS (2)
  - Abnormal dreams [Recovered/Resolved]
  - Headache [Not Recovered/Not Resolved]
